FAERS Safety Report 15934537 (Version 1)
Quarter: 2019Q1

REPORT INFORMATION
  Report Type: Report from Study
  Country: JP (occurrence: JP)
  Receive Date: 20190207
  Receipt Date: 20190207
  Transmission Date: 20190417
  Serious: Yes (Hospitalization, Other)
  Sender: FDA-Public Use
  Company Number: JP-PFIZER INC-2019057854

PATIENT
  Age: 62 Year
  Sex: Female
  Weight: 32 kg

DRUGS (5)
  1. RAPALIMUS [Suspect]
     Active Substance: SIROLIMUS
     Indication: TUBEROUS SCLEROSIS COMPLEX
     Dosage: 2 MG, 1X/DAY
     Route: 048
     Dates: start: 20180207
  2. ZOLPIDEM TARTRATE. [Concomitant]
     Active Substance: ZOLPIDEM TARTRATE
     Dosage: UNK
     Route: 048
  3. RAPALIMUS [Suspect]
     Active Substance: SIROLIMUS
     Indication: LYMPHANGIOLEIOMYOMATOSIS
     Dosage: 2 MG, 1X/DAY
     Route: 048
     Dates: start: 20170720, end: 20180130
  4. MIYA-BM [Concomitant]
     Active Substance: CLOSTRIDIUM BUTYRICUM SPORES STRAIN M-55
     Indication: PROPHYLAXIS
     Dosage: UNK
     Route: 048
     Dates: start: 20170719
  5. SENNOSIDE [SENNOSIDE A+B] [Concomitant]
     Dosage: UNK
     Route: 048

REACTIONS (7)
  - Femoral neck fracture [Recovered/Resolved]
  - Depressive symptom [Recovering/Resolving]
  - Pleural effusion [Not Recovered/Not Resolved]
  - Humerus fracture [Recovering/Resolving]
  - Stomatitis [Recovered/Resolved]
  - Ascites [Not Recovered/Not Resolved]
  - Diarrhoea [Recovering/Resolving]

NARRATIVE: CASE EVENT DATE: 20170912
